FAERS Safety Report 6393780-X (Version None)
Quarter: 2009Q4

REPORT INFORMATION
  Report Type: 
  Country: None (occurrence: None)
  Receive Date: 20091008
  Receipt Date: 20091001
  Transmission Date: 20100525
  Serious: Yes (Death)
  Sender: FDA-Public Use
  Company Number: US-MERCK-0909USA03262

PATIENT
  Age: 2 Year
  Sex: Male
  Weight: 12 kg

DRUGS (2)
  1. SINGULAIR [Suspect]
     Indication: ASTHMA
     Route: 048
     Dates: start: 20090121, end: 20090124
  2. SINGULAIR [Suspect]
     Route: 048
     Dates: start: 20090113, end: 20090116

REACTIONS (6)
  - AGGRESSION [None]
  - CRYING [None]
  - EAR PAIN [None]
  - GAIT DISTURBANCE [None]
  - INSOMNIA [None]
  - PYREXIA [None]
